FAERS Safety Report 24559890 (Version 1)
Quarter: 2024Q4

REPORT INFORMATION
  Report Type: Spontaneous
  Country: US (occurrence: None)
  Receive Date: 20241028
  Receipt Date: 20241028
  Transmission Date: 20250115
  Serious: Yes (Death)
  Sender: Public
  Company Number: None

PATIENT
  Age: 77 Year
  Sex: Male
  Weight: 63 kg

DRUGS (11)
  1. CAPECITABINE [Suspect]
     Active Substance: CAPECITABINE
     Indication: Oesophageal carcinoma
     Dosage: OTHER FREQUENCY : 14 DAYS ON , 7 DAYS OFF;?
     Route: 048
     Dates: start: 20240329, end: 20241007
  2. ESCITALOPRAM [Concomitant]
     Active Substance: ESCITALOPRAM OXALATE
  3. ACETAMINOPHEN\OXYCODONE HYDROCHLORIDE [Concomitant]
     Active Substance: ACETAMINOPHEN\OXYCODONE HYDROCHLORIDE
  4. NOVOLOG [Concomitant]
     Active Substance: INSULIN ASPART
  5. TRESIBA [Concomitant]
     Active Substance: INSULIN DEGLUDEC
  6. PREGABALIN [Concomitant]
     Active Substance: PREGABALIN
  7. TAMSULOSIN [Concomitant]
     Active Substance: TAMSULOSIN
  8. PROCHLORPERAZINE [Concomitant]
     Active Substance: PROCHLORPERAZINE
  9. DULOXETINE [Concomitant]
     Active Substance: DULOXETINE
  10. PANTOPRAZOLE [Concomitant]
     Active Substance: PANTOPRAZOLE
  11. FINASTERIDE [Concomitant]
     Active Substance: FINASTERIDE

REACTIONS (1)
  - Death [None]

NARRATIVE: CASE EVENT DATE: 20241007
